FAERS Safety Report 25646074 (Version 1)
Quarter: 2025Q3

REPORT INFORMATION
  Report Type: Spontaneous
  Country: JP (occurrence: JP)
  Receive Date: 20250805
  Receipt Date: 20250805
  Transmission Date: 20251020
  Serious: Yes (Other)
  Sender: MERCK SHARP & DOHME LLC
  Company Number: JP-009507513-2276516

PATIENT
  Age: 45 Year
  Sex: Male

DRUGS (3)
  1. KEYTRUDA [Suspect]
     Active Substance: PEMBROLIZUMAB
     Indication: Gastric cancer stage IV
     Dosage: 200 MG ONCE EVERY 3 WEEKS, 6 COURSES
     Route: 041
     Dates: start: 20240912, end: 20250219
  2. OXALIPLATIN [Suspect]
     Active Substance: OXALIPLATIN
     Indication: Gastric cancer stage IV
     Dosage: 100 MG/M^2, EVERY 3 WEEKS
     Route: 041
     Dates: start: 20240912, end: 20250219
  3. TS-1 [Suspect]
     Active Substance: GIMERACIL\OTERACIL POTASSIUM\TEGAFUR
     Indication: Gastric cancer stage IV
     Dosage: 50 MG TWICE A DAY
     Route: 048
     Dates: start: 20240912, end: 20250219

REACTIONS (3)
  - Malignant neoplasm progression [Unknown]
  - Intestinal obstruction [Unknown]
  - Product use issue [Unknown]

NARRATIVE: CASE EVENT DATE: 20240912
